FAERS Safety Report 17896519 (Version 2)
Quarter: 2020Q3

REPORT INFORMATION
  Report Type: Report from Study
  Country: None (occurrence: US)
  Receive Date: 20200615
  Receipt Date: 20200825
  Transmission Date: 20201103
  Serious: Yes (Other)
  Sender: FDA-Public Use
  Company Number: US-ABBVIE-20K-163-3424418-00

PATIENT
  Sex: Male
  Weight: 72.64 kg

DRUGS (1)
  1. HUMIRA [Suspect]
     Active Substance: ADALIMUMAB
     Indication: PSORIASIS
     Dosage: CITRATE FREE
     Route: 058

REACTIONS (13)
  - Gastrointestinal pain [Not Recovered/Not Resolved]
  - Diarrhoea [Unknown]
  - Bladder discomfort [Not Recovered/Not Resolved]
  - Constipation [Not Recovered/Not Resolved]
  - Flatulence [Unknown]
  - Musculoskeletal discomfort [Not Recovered/Not Resolved]
  - Abdominal discomfort [Not Recovered/Not Resolved]
  - Psoriasis [Unknown]
  - Abdominal mass [Unknown]
  - Prostatic disorder [Not Recovered/Not Resolved]
  - Pulmonary oedema [Unknown]
  - Renal disorder [Unknown]
  - Spinal osteoarthritis [Not Recovered/Not Resolved]
